FAERS Safety Report 8879282 (Version 1)
Quarter: 2012Q4

REPORT INFORMATION
  Report Type: Report from Study
  Country: NL (occurrence: NL)
  Receive Date: 20121031
  Receipt Date: 20121031
  Transmission Date: 20130627
  Serious: Yes (Hospitalization)
  Sender: FDA-Public Use
  Company Number: NL-BAXTER-2012BAX021231

PATIENT
  Age: 66 Year
  Sex: Male
  Weight: 63 kg

DRUGS (8)
  1. ENDOXAN I.V., POEDER VOOR OPLOSSING VOOR INJECTIE 200, 500, 1000 MG [Suspect]
     Indication: B-CELL LYMPHOMA
     Route: 042
     Dates: start: 20101129
  2. ENDOXAN I.V., POEDER VOOR OPLOSSING VOOR INJECTIE 200, 500, 1000 MG [Suspect]
     Route: 042
     Dates: start: 20101130
  3. PHENYTOIN [Suspect]
     Indication: B-CELL LYMPHOMA
     Route: 042
     Dates: start: 20101123
  4. PHENYTOIN [Suspect]
     Route: 042
     Dates: start: 20101130
  5. BUSULFAN [Suspect]
     Indication: B-CELL LYMPHOMA
     Route: 048
     Dates: start: 20101125
  6. BUSULFAN [Suspect]
     Route: 048
     Dates: start: 20101128
  7. FOLIUMZUUR [Concomitant]
     Indication: PROPHYLACTIC
     Route: 065
     Dates: start: 20110110
  8. FOLIUMZUUR [Concomitant]
     Route: 065
     Dates: start: 20110130

REACTIONS (1)
  - Pneumonia [Recovered/Resolved]
